FAERS Safety Report 20669525 (Version 1)
Quarter: 2022Q2

REPORT INFORMATION
  Report Type: Spontaneous
  Country: US (occurrence: None)
  Receive Date: 20220403
  Receipt Date: 20220403
  Transmission Date: 20220721
  Serious: No
  Sender: FDA-Public Use
  Company Number: None

PATIENT
  Age: 40 Year
  Sex: Female
  Weight: 94.5 kg

DRUGS (8)
  1. DEXTROAMPHET SACCHARAT, AMPHET ASPARTATE, DEXTROAMPHET SULFATE AND AMP [Suspect]
     Active Substance: AMPHETAMINE ASPARTATE\AMPHETAMINE SULFATE\DEXTROAMPHETAMINE SACCHARATE\DEXTROAMPHETAMINE SULFATE
     Indication: Narcolepsy
     Dosage: OTHER QUANTITY : 1 CAPSULE(S);?FREQUENCY : 4 TIMES A DAY;?
     Route: 048
     Dates: start: 20220311
  2. DULOXETINE [Concomitant]
     Active Substance: DULOXETINE
  3. GABAPENTIN [Concomitant]
     Active Substance: GABAPENTIN
  4. ADDERALL XR [Concomitant]
     Active Substance: AMPHETAMINE ASPARTATE\AMPHETAMINE SULFATE\DEXTROAMPHETAMINE SACCHARATE\DEXTROAMPHETAMINE SULFATE
  5. VITAMIN D [Concomitant]
     Active Substance: VITAMIN D NOS
  6. CITRUCEL [Concomitant]
     Active Substance: METHYLCELLULOSE (4000 MPA.S)
  7. VITAMINS [Concomitant]
     Active Substance: VITAMINS
  8. PREBIOTICS [Concomitant]

REACTIONS (6)
  - Drug ineffective [None]
  - Somnolence [None]
  - Treatment failure [None]
  - Narcolepsy [None]
  - Extra dose administered [None]
  - Product substitution issue [None]

NARRATIVE: CASE EVENT DATE: 20220311
